FAERS Safety Report 4798130-8 (Version None)
Quarter: 2005Q4

REPORT INFORMATION
  Report Type: 
  Country: None (occurrence: None)
  Receive Date: 20051014
  Receipt Date: 20051006
  Transmission Date: 20060501
  Serious: Yes (Hospitalization)
  Sender: FDA-Public Use
  Company Number: JP-BOEHRINGER INGELHEIM PHARMACEUTICALS, INC.-2005-BP-17886NB

PATIENT
  Age: 72 Year
  Sex: Female

DRUGS (5)
  1. MICARDIS [Suspect]
     Route: 048
  2. DAONIL [Concomitant]
     Route: 048
     Dates: end: 20051003
  3. ACTOS [Concomitant]
     Route: 048
     Dates: end: 20051003
  4. ACECOL [Concomitant]
     Route: 048
  5. BUFFERIN [Concomitant]
     Route: 048

REACTIONS (2)
  - GLYCOSYLATED HAEMOGLOBIN INCREASED [None]
  - HYPOGLYCAEMIA [None]
